FAERS Safety Report 5324539-X (Version None)
Quarter: 2007Q2

REPORT INFORMATION
  Report Type: 
  Country: None (occurrence: None)
  Receive Date: 20070508
  Receipt Date: 20070424
  Transmission Date: 20071010
  Serious: Yes (Other)
  Sender: FDA-Public Use
  Company Number: 2007000559

PATIENT
  Age: 66 Year
  Sex: Female

DRUGS (11)
  1. ERLOTINIB (TABLET) [Suspect]
     Indication: OVARIAN CANCER
     Dosage: 150 MG (QD), ORAL
     Route: 048
     Dates: start: 20060720
  2. SEROQUEL [Concomitant]
  3. LEVOTHYROXINE SODIUM [Concomitant]
  4. SOTALOL HCL [Concomitant]
  5. DIABETEX (METFORMIN  HYDROCHLORIDE) [Concomitant]
  6. NEXIUM [Concomitant]
  7. CIPRALEX [Concomitant]
  8. ALPRAZOLAM [Concomitant]
  9. ATORVASTATIN CALCIUM [Concomitant]
  10. SPIRONOLACTONE [Concomitant]
  11. .. [Concomitant]

REACTIONS (5)
  - BLINDNESS [None]
  - HYPERCHOLESTEROLAEMIA [None]
  - HYPERTRIGLYCERIDAEMIA [None]
  - OPTIC ISCHAEMIC NEUROPATHY [None]
  - SINUSITIS [None]
